FAERS Safety Report 8014329-1 (Version None)
Quarter: 2011Q4

REPORT INFORMATION
  Report Type: 
  Country: None (occurrence: None)
  Receive Date: 20111229
  Receipt Date: 20111227
  Transmission Date: 20120403
  Serious: Yes (Other)
  Sender: FDA-Public Use
  Company Number: US-PFIZER INC-2011255882

PATIENT
  Sex: Male
  Weight: 34.014 kg

DRUGS (8)
  1. LIPITOR [Suspect]
     Dosage: 20 MG, 1X/DAY
     Route: 048
     Dates: start: 20110526, end: 20110719
  2. LIPITOR [Suspect]
     Dosage: 40 MG, 1X/DAY
     Route: 048
     Dates: start: 20110719, end: 20111104
  3. LIPITOR [Suspect]
     Indication: BLOOD CHOLESTEROL INCREASED
     Dosage: 20 MG, DAILY
     Dates: start: 20110601
  4. LIPITOR [Suspect]
     Indication: HYPERCHOLESTEROLAEMIA
     Dosage: 40 MG, DAILY
     Dates: start: 20110526
  5. SIMVASTATIN [Suspect]
     Dosage: UNK
  6. ACETYLSALICYLIC ACID [Concomitant]
     Dosage: 162 MG, 1X/DAY
     Dates: start: 20080101
  7. CARVEDILOL [Concomitant]
     Dosage: 25 MG, 2X/DAY
     Dates: start: 20080101
  8. ENALAPRIL [Concomitant]
     Dosage: 5 MG, 2X/DAY
     Dates: start: 20080101

REACTIONS (1)
  - PROSTATIC SPECIFIC ANTIGEN INCREASED [None]
